FAERS Safety Report 10549587 (Version 1)
Quarter: 2014Q4

REPORT INFORMATION
  Report Type: Spontaneous
  Country: US (occurrence: US)
  Receive Date: 20141028
  Receipt Date: 20141028
  Transmission Date: 20150529
  Serious: No
  Sender: FDA-Public Use
  Company Number: US-BAYER-2014-158026

PATIENT
  Age: 53 Year
  Sex: Male

DRUGS (1)
  1. GADAVIST [Suspect]
     Active Substance: GADOBUTROL
     Indication: SCAN
     Dosage: 9 ML, UNK
     Dates: start: 20141015

REACTIONS (2)
  - Injection site mass [Recovered/Resolved]
  - Nausea [None]

NARRATIVE: CASE EVENT DATE: 201410
